FAERS Safety Report 4935398-9 (Version None)
Quarter: 2006Q1

REPORT INFORMATION
  Report Type: 
  Country: None (occurrence: None)
  Receive Date: 20060307
  Receipt Date: 20000518
  Transmission Date: 20060701
  Serious: Yes (Death, Hospitalization)
  Sender: FDA-Public Use
  Company Number: US-GLAXOSMITHKLINE-B0236312A

PATIENT
  Age: 64 Year
  Sex: Male

DRUGS (18)
  1. TRANYLCYPROMINE [Suspect]
     Indication: DEPRESSION
     Dosage: 60MG PER DAY
  2. CHLORDIAZEPOXIDE [Concomitant]
     Indication: DEPRESSION
     Dosage: 50MG PER DAY
  3. FLURAZEPAM [Concomitant]
     Indication: DEPRESSION
  4. DIGOXIN [Concomitant]
     Indication: ANGINA PECTORIS
  5. FUROSEMIDE [Concomitant]
     Indication: ANGINA PECTORIS
  6. NITROGLYCERIN [Concomitant]
     Indication: ANGINA PECTORIS
  7. METOPROLOL [Concomitant]
     Indication: ANGINA PECTORIS
  8. DILTIAZEM [Concomitant]
     Indication: ANGINA PECTORIS
  9. OMEPRAZOLE [Concomitant]
  10. IRON [Concomitant]
  11. DOMPERIDONE [Concomitant]
  12. SUCRALFATE [Concomitant]
  13. MORPHINE [Concomitant]
  14. PERPHENAZINE [Concomitant]
  15. ISOSORBIDE [Concomitant]
  16. FENTANYL CITRATE [Concomitant]
  17. MIDAZOLAM HCL [Concomitant]
  18. PANCURONIUM [Concomitant]

REACTIONS (7)
  - CARDIAC ARREST [None]
  - CHILLS [None]
  - HYPERTENSION [None]
  - HYPERTHERMIA [None]
  - HYPOTENSION [None]
  - PULMONARY EMBOLISM [None]
  - SEPSIS [None]
